FAERS Safety Report 20072635 (Version 7)
Quarter: 2023Q2

REPORT INFORMATION
  Report Type: Report from Study
  Country: KR (occurrence: KR)
  Receive Date: 20211116
  Receipt Date: 20230417
  Transmission Date: 20230722
  Serious: Yes (Hospitalization)
  Sender: FDA-Public Use
  Company Number: KR-ABBVIE-21K-090-4160195-00

PATIENT
  Age: 50 Year
  Sex: Female
  Weight: 35 kg

DRUGS (7)
  1. RINVOQ [Suspect]
     Active Substance: UPADACITINIB
     Indication: Rheumatoid arthritis
     Dosage: FORM STRENGTH: 15 MILLIGRAMS
     Route: 048
     Dates: start: 20210825, end: 20211101
  2. RINVOQ [Suspect]
     Active Substance: UPADACITINIB
     Indication: Rheumatoid arthritis
     Dosage: FORM STRENGTH: 15 MG
     Route: 048
     Dates: start: 20211222
  3. FOLCID [Concomitant]
     Indication: Rheumatoid arthritis
     Route: 048
     Dates: start: 20211110, end: 20211110
  4. NOLTEC [Concomitant]
     Indication: Rheumatoid arthritis
     Route: 048
     Dates: start: 20210825, end: 20211019
  5. METHOTREXATE [Concomitant]
     Active Substance: METHOTREXATE
     Indication: Rheumatoid arthritis
     Dosage: FROM STRENGTH: 2.5
     Route: 048
     Dates: start: 20210825, end: 20211110
  6. TRACINONE [Concomitant]
     Indication: Rheumatoid arthritis
     Route: 048
  7. URSODIOL [Concomitant]
     Active Substance: URSODIOL
     Indication: Prophylaxis
     Route: 048
     Dates: start: 20211020

REACTIONS (3)
  - Abdominal pain upper [Recovered/Resolved]
  - Abdominal pain lower [Recovered/Resolved]
  - Genital herpes zoster [Recovered/Resolved]

NARRATIVE: CASE EVENT DATE: 20211028
